FAERS Safety Report 19883585 (Version 3)
Quarter: 2021Q4

REPORT INFORMATION
  Report Type: Spontaneous
  Country: US (occurrence: US)
  Receive Date: 20210927
  Receipt Date: 20211129
  Transmission Date: 20220303
  Serious: Yes (Hospitalization, Other)
  Sender: FDA-Public Use
  Company Number: US-SUN PHARMACEUTICAL INDUSTRIES LTD-2021R1-312298

PATIENT
  Sex: Male

DRUGS (1)
  1. ODOMZO [Suspect]
     Active Substance: SONIDEGIB
     Indication: Basal cell carcinoma
     Dosage: TAKE 1 CAPSULE BY MOUTH EVERY DAY ON EMPTY STOMACH 1 HOUR BEFORE MEAL OR 2 HOURS AFTER MEAL AS DIREC
     Route: 048
     Dates: start: 20210803

REACTIONS (3)
  - Ulcer haemorrhage [Recovered/Resolved]
  - Gastritis haemorrhagic [Unknown]
  - Diarrhoea [Unknown]
